FAERS Safety Report 9459470 (Version 5)
Quarter: 2014Q2

REPORT INFORMATION
  Report Type: Report from Study
  Country: US (occurrence: US)
  Receive Date: 20130815
  Receipt Date: 20140612
  Transmission Date: 20141212
  Serious: Yes (Hospitalization, Other)
  Sender: FDA-Public Use
  Company Number: US-JNJFOC-20130804494

PATIENT
  Age: 19 Year
  Sex: Male
  Weight: 68 kg

DRUGS (9)
  1. REMICADE [Suspect]
     Indication: CROHN^S DISEASE
     Route: 042
     Dates: start: 20081210
  2. HUMIRA [Suspect]
     Indication: CROHN^S DISEASE
     Route: 065
     Dates: start: 20100429
  3. METHOTREXATE [Concomitant]
     Indication: CROHN^S DISEASE
     Route: 065
     Dates: start: 20130530
  4. PREDNISONE [Concomitant]
     Route: 065
  5. MIRTAZAPINE [Concomitant]
     Route: 065
  6. TOBRAMYCIN/DEXAMETHASONE [Concomitant]
     Route: 065
  7. ACETAMINOPHEN [Concomitant]
     Route: 065
  8. VITAMIN D [Concomitant]
     Route: 065
  9. ONDANSETRON [Concomitant]
     Route: 065

REACTIONS (4)
  - Abdominal abscess [Recovered/Resolved]
  - Scleral hyperaemia [Recovered/Resolved]
  - Crohn^s disease [Recovered/Resolved]
  - Malnutrition [Not Recovered/Not Resolved]
